FAERS Safety Report 19363868 (Version 2)
Quarter: 2021Q2

REPORT INFORMATION
  Report Type: Report from Study
  Country: US (occurrence: US)
  Receive Date: 20210602
  Receipt Date: 20210607
  Transmission Date: 20210717
  Serious: Yes (Hospitalization, Other)
  Sender: FDA-Public Use
  Company Number: US-EXELIXIS-XL18421040904

PATIENT
  Age: 65 Year
  Sex: Male
  Weight: 95.3 kg

DRUGS (22)
  1. ASTELIN [Concomitant]
     Active Substance: AZELASTINE HYDROCHLORIDE
  2. VITAMIN D3 [Concomitant]
     Active Substance: CHOLECALCIFEROL
  3. IPILIMUMAB [Suspect]
     Active Substance: IPILIMUMAB
     Indication: MYXOFIBROSARCOMA
     Dosage: 1 MG/KG, Q3WEEKS
     Route: 042
  4. IPILIMUMAB [Suspect]
     Active Substance: IPILIMUMAB
     Dosage: 3 MG/KG, Q3WEEKS
     Route: 042
     Dates: start: 20210420
  5. VITAMIN B12 [Concomitant]
     Active Substance: CYANOCOBALAMIN
  6. LACTOSE [Concomitant]
     Active Substance: LACTOSE
  7. NEURONTIN [Concomitant]
     Active Substance: GABAPENTIN
  8. POTASSIUM [Concomitant]
     Active Substance: POTASSIUM
  9. FOOD SUPPLMENT [Concomitant]
  10. VITAMIN B COMPLEX [Concomitant]
     Active Substance: CYANOCOBALAMIN\DEXPANTHENOL\NIACINAMIDE\PYRIDOXINE HYDROCHLORIDE\RIBOFLAVIN 5^-PHOSPHATE SODIUM\THIAMINE HYDROCHLORIDE\VITAMIN B COMPLEX
  11. PROBIOTIC?10 [Concomitant]
  12. ZESTORETIC [Concomitant]
     Active Substance: HYDROCHLOROTHIAZIDE\LISINOPRIL
  13. MAG?OX [Concomitant]
     Active Substance: MAGNESIUM OXIDE
  14. MULTIVITAMIN [Concomitant]
     Active Substance: VITAMINS
  15. ZINC. [Concomitant]
     Active Substance: ZINC
  16. XL184 [Suspect]
     Active Substance: CABOZANTINIB
     Indication: MYXOFIBROSARCOMA
     Dosage: 40 MG, QD
     Route: 048
     Dates: start: 20210420
  17. TUMS [Concomitant]
     Active Substance: CALCIUM CARBONATE
  18. TYLENOL [Concomitant]
     Active Substance: ACETAMINOPHEN
  19. FLONASE [Concomitant]
     Active Substance: FLUTICASONE PROPIONATE
  20. CLARITIN [Concomitant]
     Active Substance: LORATADINE
  21. COMPAZINE [Concomitant]
     Active Substance: PROCHLORPERAZINE MALEATE
  22. ROXICODONE [Concomitant]
     Active Substance: OXYCODONE HYDROCHLORIDE

REACTIONS (1)
  - Pneumothorax [Unknown]

NARRATIVE: CASE EVENT DATE: 20210527
